FAERS Safety Report 6511732-3 (Version None)
Quarter: 2009Q4

REPORT INFORMATION
  Report Type: 
  Country: None (occurrence: None)
  Receive Date: 20091222
  Receipt Date: 20090331
  Transmission Date: 20100525
  Serious: No
  Sender: FDA-Public Use
  Company Number: US-ASTRAZENECA-2009UW08139

PATIENT
  Sex: Female
  Weight: 59 kg

DRUGS (10)
  1. CRESTOR [Suspect]
     Indication: BLOOD CHOLESTEROL INCREASED
     Route: 048
     Dates: start: 20090201, end: 20090324
  2. NEXIUM [Concomitant]
     Route: 048
  3. COUMADIN [Concomitant]
  4. TRIAMTERENE [Concomitant]
  5. METOPROLOL TARTRATE [Concomitant]
  6. DIGOXIN [Concomitant]
  7. ALPRAZOLAM [Concomitant]
  8. SERTRALINE HCL [Concomitant]
  9. POTASSIUM CHLORIDE [Concomitant]
  10. DICYCLOMINE [Concomitant]

REACTIONS (2)
  - NECK PAIN [None]
  - PAIN IN EXTREMITY [None]
